FAERS Safety Report 4600147-0 (Version None)
Quarter: 2005Q1

REPORT INFORMATION
  Report Type: 
  Country: None (occurrence: None)
  Receive Date: 20050302
  Receipt Date: 20050302
  Transmission Date: 20050727
  Serious: No
  Sender: FDA-Public Use
  Company Number: None

PATIENT
  Age: 36 Year
  Sex: Female
  Weight: 74.8435 kg

DRUGS (3)
  1. GLUCOVANCE [Suspect]
     Dosage: 500 / 2.5 BID
  2. LIPITOR [Concomitant]
  3. COZAAR [Concomitant]

REACTIONS (17)
  - ABDOMINAL PAIN [None]
  - ANAEMIA OF CHRONIC DISEASE [None]
  - ANION GAP INCREASED [None]
  - ANTINEUTROPHIL CYTOPLASMIC ANTIBODY POSITIVE [None]
  - ASTHENIA [None]
  - BLOOD GLUCOSE INCREASED [None]
  - BLOOD PRESSURE INCREASED [None]
  - CARDIOMEGALY [None]
  - DIALYSIS [None]
  - METABOLIC ACIDOSIS [None]
  - OEDEMA PERIPHERAL [None]
  - PULMONARY CONGESTION [None]
  - PULMONARY OEDEMA [None]
  - RENAL FAILURE ACUTE [None]
  - RENAL FAILURE CHRONIC [None]
  - RESPIRATORY RATE INCREASED [None]
  - VOMITING [None]
